FAERS Safety Report 22593241 (Version 1)
Quarter: 2023Q2

REPORT INFORMATION
  Report Type: Spontaneous
  Country: BE (occurrence: BE)
  Receive Date: 20230613
  Receipt Date: 20230613
  Transmission Date: 20230721
  Serious: Yes (Other)
  Sender: FDA-Public Use
  Company Number: None

PATIENT
  Sex: Female

DRUGS (1)
  1. ZOLPIDEM TARTRATE [Suspect]
     Active Substance: ZOLPIDEM TARTRATE
     Dosage: UNK, QM (ON AVERAGE ABOUT FIFTEEN BOXES PER MONTH)

REACTIONS (2)
  - Drug abuse [Unknown]
  - Pharmaceutical nomadism [Unknown]
